FAERS Safety Report 7060576-5 (Version None)
Quarter: 2010Q4

REPORT INFORMATION
  Report Type: 
  Country: None (occurrence: None)
  Receive Date: 20101025
  Receipt Date: 20100922
  Transmission Date: 20110411
  Serious: Yes (Other)
  Sender: FDA-Public Use
  Company Number: PHHY2010BR66650

PATIENT
  Age: 75 Year
  Sex: Male

DRUGS (13)
  1. CHLORTHALIDONE [Suspect]
     Dosage: 12.5 MG
  2. METFORMIN [Suspect]
     Indication: DIABETES MELLITUS
     Dosage: 850 MG, BID
  3. EXFORGE [Suspect]
     Dosage: 320/5 MG
  4. ALISKIREN [Suspect]
     Dosage: 300 MG
  5. NIFEDIPINE [Concomitant]
     Dosage: 20 MG
  6. ATENOLOL [Concomitant]
     Dosage: 50 MG, 2X PER DAY
  7. METHYLDOPA [Concomitant]
     Dosage: 500 MG, (3X PER DAY)
  8. GLIMEPIRIDE [Concomitant]
     Indication: DIABETES MELLITUS
     Dosage: 2 MG, BID
  9. CIPROFIBRATE [Concomitant]
     Indication: HYPERTRIGLYCERIDAEMIA
     Dosage: 100 MG NIGHT
  10. SPIRONOLACTONE [Concomitant]
     Dosage: 100 MG
  11. SPIRONOLACTONE [Concomitant]
     Dosage: 50 MG
  12. VERAPAMIL [Concomitant]
  13. DOXAZOSIN MESYLATE [Concomitant]

REACTIONS (15)
  - ADRENAL ADENOMA [None]
  - BLOOD ALDOSTERONE INCREASED [None]
  - BLOOD GLUCOSE INCREASED [None]
  - BREAST PAIN [None]
  - CONDUCTION DISORDER [None]
  - FATIGUE [None]
  - GLYCOSYLATED HAEMOGLOBIN INCREASED [None]
  - HYPERADRENALISM [None]
  - HYPERTENSION [None]
  - HYPOKALAEMIA [None]
  - MUSCULAR WEAKNESS [None]
  - PRIMARY HYPERALDOSTERONISM [None]
  - RENAL CYST [None]
  - TREATMENT NONCOMPLIANCE [None]
  - VENTRICULAR HYPERTROPHY [None]
